FAERS Safety Report 9779243 (Version 2)
Quarter: 2014Q1

REPORT INFORMATION
  Report Type: Spontaneous
  Country: US (occurrence: US)
  Receive Date: 20131223
  Receipt Date: 20140106
  Transmission Date: 20141002
  Serious: Yes (Other)
  Sender: FDA-Public Use
  Company Number: US-RB-061380-13

PATIENT
  Age: 24 Year
  Sex: Male

DRUGS (3)
  1. MUCINEX CHILD COUGH CHERRY LIQUID [Suspect]
     Indication: HEADACHE
     Dosage: TOOK 10 ML ON 19/DEC/2013
     Route: 048
     Dates: start: 20131219
  2. MUCINEX CHILD COUGH CHERRY LIQUID [Suspect]
     Indication: HEADACHE
     Dosage: TOOK 10 ML ON 19/DEC/2013
     Route: 048
     Dates: start: 20131219
  3. MUCINEX CHILD COUGH CHERRY LIQUID [Suspect]
     Indication: PYREXIA
     Dosage: TOOK 10 ML ON 19/DEC/2013
     Route: 048
     Dates: start: 20131219

REACTIONS (8)
  - Epistaxis [Recovered/Resolved]
  - Swelling face [Recovered/Resolved]
  - Erythema [Recovered/Resolved]
  - Pruritus [Recovered/Resolved]
  - Headache [Recovered/Resolved]
  - Feeling abnormal [Recovered/Resolved]
  - Diarrhoea [Recovered/Resolved]
  - Vomiting [Recovered/Resolved]
